FAERS Safety Report 24616940 (Version 2)
Quarter: 2024Q4

REPORT INFORMATION
  Report Type: Spontaneous
  Country: FR (occurrence: FR)
  Receive Date: 20241114
  Receipt Date: 20241120
  Transmission Date: 20250115
  Serious: Yes (Other)
  Sender: SANOFI AVENTIS
  Company Number: None

PATIENT
  Age: 25 Year
  Sex: Female

DRUGS (3)
  1. DUPILUMAB [Suspect]
     Active Substance: DUPILUMAB
     Dosage: UNK
  2. POLYSORBATE 80 [Suspect]
     Active Substance: POLYSORBATE 80
     Dosage: UNK
  3. OMALIZUMAB [Suspect]
     Active Substance: OMALIZUMAB
     Indication: Asthma
     Dosage: UNK

REACTIONS (6)
  - Anaphylactic reaction [Unknown]
  - Eyelid oedema [Unknown]
  - Dyspnoea [Unknown]
  - Cough [Unknown]
  - Cutaneous symptom [Unknown]
  - Urticaria [Unknown]
